FAERS Safety Report 16895093 (Version 1)
Quarter: 2019Q4

REPORT INFORMATION
  Report Type: Spontaneous
  Country: US (occurrence: US)
  Receive Date: 20190814
  Receipt Date: 20190814
  Transmission Date: 20200122
  Serious: No
  Sender: FDA-Public Use
  Company Number: None

PATIENT

DRUGS (2)
  1. TRAMADOL ER [Suspect]
     Active Substance: TRAMADOL HYDROCHLORIDE
  2. TRAMADOL. [Suspect]
     Active Substance: TRAMADOL

REACTIONS (3)
  - Incorrect product dosage form administered [None]
  - Product prescribing error [None]
  - Product dispensing error [None]
